FAERS Safety Report 18807012 (Version 2)
Quarter: 2021Q1

REPORT INFORMATION
  Report Type: Report from Study
  Country: None (occurrence: US)
  Receive Date: 20210128
  Receipt Date: 20210302
  Transmission Date: 20210419
  Serious: Yes (Other)
  Sender: FDA-Public Use
  Company Number: US-ABBVIE-21P-163-3748625-00

PATIENT
  Sex: Female

DRUGS (1)
  1. HUMIRA [Suspect]
     Active Substance: ADALIMUMAB
     Indication: HIDRADENITIS
     Dosage: CITRATE FREE
     Route: 058

REACTIONS (6)
  - Glycosylated haemoglobin abnormal [Unknown]
  - Pain in extremity [Unknown]
  - Peripheral swelling [Unknown]
  - Eyelid infection [Unknown]
  - Anaphylactic shock [Not Recovered/Not Resolved]
  - Hidradenitis [Unknown]
